FAERS Safety Report 19724543 (Version 1)
Quarter: 2021Q3

REPORT INFORMATION
  Report Type: Report from Study
  Country: US (occurrence: US)
  Receive Date: 20210819
  Receipt Date: 20210819
  Transmission Date: 20211014
  Serious: Yes (Other)
  Sender: FDA-Public Use
  Company Number: US-JAZZ-2021-US-014914

PATIENT
  Age: 60 Year
  Sex: Male
  Weight: 164.9 kg

DRUGS (4)
  1. MIDOSTAURIN [Suspect]
     Active Substance: MIDOSTAURIN
     Indication: HAEMATOLOGICAL MALIGNANCY
  2. MICAFUNGIN. [Suspect]
     Active Substance: MICAFUNGIN SODIUM
     Dosage: 100 MILLIGRAM, QD
     Route: 042
     Dates: start: 20210803, end: 20210809
  3. VANCOMYCIN [Suspect]
     Active Substance: VANCOMYCIN
     Dosage: 500 MILLIGRAM, Q6HOURS
     Route: 048
     Dates: start: 20210808, end: 20210809
  4. CPX?351 [Suspect]
     Active Substance: CYTARABINE\DAUNORUBICIN
     Indication: HAEMATOLOGICAL MALIGNANCY
     Dosage: 100 MG CYTARABINE/44 MG DAUNORUBICIN
     Route: 042
     Dates: start: 20210807, end: 20210809

REACTIONS (1)
  - Blood bilirubin increased [Not Recovered/Not Resolved]

NARRATIVE: CASE EVENT DATE: 20210810
